FAERS Safety Report 16019422 (Version 1)
Quarter: 2019Q1

REPORT INFORMATION
  Report Type: Spontaneous
  Country: FR (occurrence: FR)
  Receive Date: 20190228
  Receipt Date: 20190228
  Transmission Date: 20190418
  Serious: Yes (Hospitalization)
  Sender: FDA-Public Use
  Company Number: FR-TEVA-2019-FR-1016374

PATIENT
  Age: 33 Year
  Sex: Male

DRUGS (4)
  1. CORTANCYL [Suspect]
     Active Substance: PREDNISONE
     Indication: POLYCHONDRITIS
     Dosage: 30 MILLIGRAM DAILY;
     Route: 048
     Dates: start: 201810
  2. ROACTEMRA [Suspect]
     Active Substance: TOCILIZUMAB
     Indication: POLYCHONDRITIS
     Dates: start: 20181025
  3. RISPERIDONE. [Suspect]
     Active Substance: RISPERIDONE
     Indication: AUTISM SPECTRUM DISORDER
     Dosage: 2 MILLIGRAM DAILY;
     Route: 048
  4. METOJECT [Suspect]
     Active Substance: METHOTREXATE SODIUM
     Indication: POLYCHONDRITIS
     Dosage: 25 MILLIGRAM DAILY;
     Route: 058
     Dates: start: 201810

REACTIONS (1)
  - Generalised tonic-clonic seizure [Recovered/Resolved]

NARRATIVE: CASE EVENT DATE: 20181129
